FAERS Safety Report 26061410 (Version 1)
Quarter: 2025Q4

REPORT INFORMATION
  Report Type: Report from Study
  Country: JP (occurrence: JP)
  Receive Date: 20251118
  Receipt Date: 20251118
  Transmission Date: 20260117
  Serious: Yes (Life-Threatening, Hospitalization, Disabling, Other)
  Sender: ALEXION PHARMACEUTICALS
  Company Number: JP-ASTRAZENECA-240136880_013120_P_1

PATIENT
  Age: 66 Year
  Sex: Female
  Weight: 56 kg

DRUGS (15)
  1. DURVALUMAB [Suspect]
     Active Substance: DURVALUMAB
     Indication: Bile duct cancer
     Dosage: 1500 MILLIGRAM
     Dates: start: 20231124, end: 20231215
  2. DURVALUMAB [Suspect]
     Active Substance: DURVALUMAB
     Dosage: 1500 MILLIGRAM
     Dates: start: 20240607, end: 20241004
  3. DURVALUMAB [Suspect]
     Active Substance: DURVALUMAB
     Dosage: 1500 MILLIGRAM, Q3W
     Dates: start: 20240607, end: 20240809
  4. DURVALUMAB [Suspect]
     Active Substance: DURVALUMAB
     Dosage: 1500 MILLIGRAM, Q3W
     Dates: start: 20240913, end: 20241004
  5. GEMCITABINE [Suspect]
     Active Substance: GEMCITABINE
     Indication: Bile duct cancer
     Dosage: 1500 MILLIGRAM/SQ. METER
     Route: 065
  6. GEMCITABINE [Suspect]
     Active Substance: GEMCITABINE
     Dosage: 1500 MILLIGRAM/SQ. METER
     Route: 065
  7. GEMCITABINE [Suspect]
     Active Substance: GEMCITABINE
     Dosage: 1000 MILLIGRAM/SQ. METER
     Route: 065
     Dates: start: 20231124, end: 20231222
  8. GEMCITABINE [Suspect]
     Active Substance: GEMCITABINE
     Dosage: 1000 MILLIGRAM/SQ. METER
     Route: 065
     Dates: start: 20240412, end: 20240809
  9. GEMCITABINE [Suspect]
     Active Substance: GEMCITABINE
     Dosage: 1000 MILLIGRAM/SQ. METER
     Route: 065
     Dates: start: 20240913, end: 20241018
  10. CISPLATIN [Suspect]
     Active Substance: CISPLATIN
     Indication: Bile duct cancer
     Dosage: 39 MILLIGRAM/SQ. METER
     Route: 065
  11. CISPLATIN [Suspect]
     Active Substance: CISPLATIN
     Dosage: 39 MILLIGRAM/SQ. METER
     Route: 065
  12. CISPLATIN [Suspect]
     Active Substance: CISPLATIN
     Dosage: 25 MILLIGRAM/SQ. METER
     Route: 065
     Dates: start: 20231124, end: 20231222
  13. CISPLATIN [Suspect]
     Active Substance: CISPLATIN
     Dosage: 25 MILLIGRAM/SQ. METER
     Route: 065
     Dates: start: 20240412, end: 20240809
  14. CISPLATIN [Suspect]
     Active Substance: CISPLATIN
     Dosage: 25 MILLIGRAM/SQ. METER
     Route: 065
     Dates: start: 20240913, end: 20241018
  15. CEFEPIME HYDROCHLORIDE [Concomitant]
     Active Substance: CEFEPIME HYDROCHLORIDE
     Dosage: DOSE UNKNOWN
     Route: 065

REACTIONS (3)
  - Laryngeal inflammation [Recovering/Resolving]
  - Anaemia [Recovering/Resolving]
  - Pneumonia aspiration [Recovered/Resolved]

NARRATIVE: CASE EVENT DATE: 20231220
